FAERS Safety Report 12276000 (Version 1)
Quarter: 2016Q2

REPORT INFORMATION
  Report Type: Spontaneous
  Country: US (occurrence: None)
  Receive Date: 20160415
  Receipt Date: 20160415
  Transmission Date: 20160815
  Serious: No
  Sender: FDA-Public Use
  Company Number: None

PATIENT
  Age: 35 Year
  Sex: Female
  Weight: 148.78 kg

DRUGS (1)
  1. ONDANSETRON, 4MG HERITAGE [Suspect]
     Active Substance: ONDANSETRON
     Indication: MIGRAINE
     Route: 040
     Dates: start: 20160412

REACTIONS (2)
  - Pruritus [None]
  - Rash [None]

NARRATIVE: CASE EVENT DATE: 20160412
